APPROVED DRUG PRODUCT: GONITRO
Active Ingredient: NITROGLYCERIN
Strength: 0.4MG/PACKET
Dosage Form/Route: POWDER;SUBLINGUAL
Application: N208424 | Product #001
Applicant: G POHL BOSKAMP GMBH AND CO KG
Approved: Jun 8, 2016 | RLD: Yes | RS: No | Type: DISCN

PATENTS:
Patent 9101592 | Expires: Mar 11, 2032